FAERS Safety Report 9236499 (Version 1)
Quarter: 2013Q2

REPORT INFORMATION
  Report Type: Spontaneous
  Country: CA (occurrence: None)
  Receive Date: 20130415
  Receipt Date: 20130415
  Transmission Date: 20140414
  Serious: Yes (Other)
  Sender: FDA-Public Use
  Company Number: 2013-1527

PATIENT
  Age: 56 Year
  Sex: 0

DRUGS (1)
  1. SOMATULINE [Suspect]
     Indication: CARCINOID TUMOUR
     Dosage: 120 MG (120 MG,1 IN 15)
     Dates: start: 20111023

REACTIONS (2)
  - Biopsy stomach [None]
  - Incorrect drug administration duration [None]
